FAERS Safety Report 10682157 (Version 1)
Quarter: 2014Q4

REPORT INFORMATION
  Report Type: Spontaneous
  Country: US (occurrence: None)
  Receive Date: 20141229
  Receipt Date: 20141229
  Transmission Date: 20150529
  Serious: Yes (Other)
  Sender: FDA-Public Use
  Company Number: None

PATIENT
  Age: 51 Year
  Sex: Female
  Weight: 90.72 kg

DRUGS (1)
  1. TINIDAZOLE. [Suspect]
     Active Substance: TINIDAZOLE
     Indication: INFECTION PARASITIC

REACTIONS (2)
  - Muscle spasms [None]
  - Pain [None]

NARRATIVE: CASE EVENT DATE: 20141227
